FAERS Safety Report 15213336 (Version 1)
Quarter: 2018Q3

REPORT INFORMATION
  Report Type: Spontaneous
  Country: US (occurrence: US)
  Receive Date: 20180730
  Receipt Date: 20180730
  Transmission Date: 20181010
  Serious: Yes (Other)
  Sender: FDA-Public Use
  Company Number: US-ACCORD-070089

PATIENT
  Age: 14 Year
  Sex: Male

DRUGS (2)
  1. IFOSFAMIDE. [Concomitant]
     Active Substance: IFOSFAMIDE
     Indication: OSTEOSARCOMA
     Dates: start: 2016
  2. ETOPOSIDE. [Suspect]
     Active Substance: ETOPOSIDE
     Indication: OSTEOSARCOMA
     Dates: start: 2016, end: 2016

REACTIONS (3)
  - Drug hypersensitivity [Recovered/Resolved]
  - Respiratory distress [Recovered/Resolved]
  - Lip swelling [Recovered/Resolved]

NARRATIVE: CASE EVENT DATE: 2016
